FAERS Safety Report 23346781 (Version 1)
Quarter: 2023Q4

REPORT INFORMATION
  Report Type: Spontaneous
  Country: FR (occurrence: FR)
  Receive Date: 20231228
  Receipt Date: 20231228
  Transmission Date: 20240109
  Serious: Yes (Hospitalization, Other)
  Sender: FDA-Public Use
  Company Number: None

PATIENT
  Age: 24 Year
  Sex: Female

DRUGS (1)
  1. TRAMADOL [Suspect]
     Active Substance: TRAMADOL\TRAMADOL HYDROCHLORIDE
     Indication: Product used for unknown indication
     Dosage: 500 MILLIGRAM,QD,(500 MG/DAY)
     Route: 048
     Dates: start: 2020, end: 20220504

REACTIONS (2)
  - Drug dependence [Recovering/Resolving]
  - Drug detoxification [Recovered/Resolved]

NARRATIVE: CASE EVENT DATE: 20200101
